FAERS Safety Report 8507695-1 (Version None)
Quarter: 2012Q3

REPORT INFORMATION
  Report Type: 
  Country: None (occurrence: None)
  Receive Date: 20120713
  Receipt Date: 20120710
  Transmission Date: 20120928
  Serious: Yes (Hospitalization, Other)
  Sender: FDA-Public Use
  Company Number: US-009507513-1206USA01218

PATIENT

DRUGS (14)
  1. MULTAQ [Suspect]
     Indication: ATRIAL FIBRILLATION
     Dates: start: 20090101
  2. PRADAXA [Concomitant]
     Dosage: UNK UNK, BID
  3. CALCITONIN SALMON [Concomitant]
  4. PLAVIX [Concomitant]
     Dosage: 75 MG, UNK
  5. DILTIAZEM [Concomitant]
     Dosage: 120 MG, UNK
  6. COZAAR [Suspect]
     Dosage: UNK MG, UNK
     Route: 048
  7. AMIODARONE HCL [Suspect]
  8. NORPACE [Suspect]
     Dosage: UNK MG, UNK
     Route: 048
  9. LEVOTIROXINA S.O [Concomitant]
     Dosage: UNK UNK, QD
  10. NORPACE [Suspect]
     Indication: ATRIAL FIBRILLATION
     Dosage: UNK MG, UNK
     Route: 048
  11. NORPACE [Suspect]
     Dosage: 150 MG, BID
     Route: 048
  12. NORPACE [Suspect]
     Indication: ATRIAL FIBRILLATION
     Dosage: 150 MG, BID
     Route: 048
  13. UBIDECARENONE [Concomitant]
     Dosage: UNK UNK, BID
  14. PRILOSEC [Concomitant]
     Dosage: UNK UNK, QD
     Route: 048

REACTIONS (9)
  - ADVERSE REACTION [None]
  - FEMUR FRACTURE [None]
  - FALL [None]
  - THORACIC VERTEBRAL FRACTURE [None]
  - ANAEMIA [None]
  - BLOOD CHOLESTEROL INCREASED [None]
  - HIP FRACTURE [None]
  - DRY MOUTH [None]
  - PAIN [None]
